FAERS Safety Report 7519249-4 (Version None)
Quarter: 2011Q2

REPORT INFORMATION
  Report Type: 
  Country: None (occurrence: None)
  Receive Date: 20110602
  Receipt Date: 20050422
  Transmission Date: 20111010
  Serious: Yes (Death)
  Sender: FDA-Public Use
  Company Number: PHEH2005US05104

PATIENT
  Age: 50 Year
  Sex: Male

DRUGS (1)
  1. NEORAL [Suspect]
     Dosage: UNK, BID

REACTIONS (1)
  - MYOCARDIAL INFARCTION [None]
